FAERS Safety Report 5140212-5 (Version None)
Quarter: 2006Q4

REPORT INFORMATION
  Report Type: 
  Country: None (occurrence: None)
  Receive Date: 20061026
  Receipt Date: 20061026
  Transmission Date: 20070319
  Serious: Yes (Hospitalization)
  Sender: FDA-Public Use
  Company Number: None

PATIENT
  Age: 54 Year
  Sex: Male
  Weight: 84.369 kg

DRUGS (11)
  1. OXANDRIN [Suspect]
     Indication: WEIGHT DECREASED
     Dosage: 10MG BID PO
     Route: 048
     Dates: start: 20060721
  2. HYDROXYZINE [Concomitant]
  3. CELEBREX [Concomitant]
  4. FENTANYL TRANSDERMAL SYSTEM [Concomitant]
  5. RESTORIL [Concomitant]
  6. SINGULAIR [Concomitant]
  7. ADVAIR DISKUS 250/50 [Concomitant]
  8. NORVASC [Concomitant]
  9. PROZAC [Concomitant]
  10. FLONASE [Concomitant]
  11. MMW [Concomitant]

REACTIONS (7)
  - DISEASE PROGRESSION [None]
  - HYPOXIA [None]
  - PNEUMONIA [None]
  - PNEUMONITIS [None]
  - PULMONARY OEDEMA [None]
  - RESPIRATORY FAILURE [None]
  - THERAPY NON-RESPONDER [None]
